FAERS Safety Report 8142031-4 (Version None)
Quarter: 2012Q1

REPORT INFORMATION
  Report Type: 
  Country: None (occurrence: None)
  Receive Date: 20120216
  Receipt Date: 20120214
  Transmission Date: 20120608
  Serious: Yes (Other)
  Sender: FDA-Public Use
  Company Number: DE-MERCK-1201DEU00020

PATIENT
  Age: 63 Year
  Sex: Female

DRUGS (3)
  1. SINEMET [Suspect]
     Indication: EXTRAPYRAMIDAL DISORDER
     Route: 048
     Dates: start: 20080314
  2. SINEMET [Suspect]
     Indication: RESTLESS LEGS SYNDROME
     Route: 048
     Dates: start: 20080314
  3. PRAMIPEXOLE DIHYDROCHLORIDE [Concomitant]
     Indication: EXTRAPYRAMIDAL DISORDER
     Route: 048
     Dates: start: 20091101

REACTIONS (2)
  - METASTATIC MALIGNANT MELANOMA [None]
  - OFF LABEL USE [None]
